FAERS Safety Report 6534938-6 (Version None)
Quarter: 2010Q1

REPORT INFORMATION
  Report Type: 
  Country: None (occurrence: None)
  Receive Date: 20100112
  Receipt Date: 20091130
  Transmission Date: 20100710
  Serious: Yes (Death, Hospitalization, Other)
  Sender: FDA-Public Use
  Company Number: US-BAXTER-2009BH012328

PATIENT
  Age: 74 Year
  Sex: Female
  Weight: 95 kg

DRUGS (36)
  1. HEPARIN SODIUM INJECTION [Suspect]
     Indication: THROMBOSIS PROPHYLAXIS
     Route: 042
     Dates: start: 20071201
  2. HEPARIN SODIUM INJECTION [Suspect]
     Route: 042
     Dates: start: 20071201
  3. HEPARIN SODIUM INJECTION [Suspect]
     Route: 042
     Dates: start: 20071201
  4. HEPARIN SODIUM INJECTION [Suspect]
     Route: 042
     Dates: start: 20071121
  5. HEPARIN SODIUM INJECTION [Suspect]
     Route: 042
     Dates: start: 20071226
  6. HEPARIN SODIUM INJECTION [Suspect]
     Route: 042
     Dates: start: 20080109
  7. HEPARIN SODIUM INJECTION [Suspect]
     Route: 042
     Dates: start: 20080109
  8. HEPARIN SODIUM INJECTION [Suspect]
     Route: 010
     Dates: start: 20070919
  9. HEPARIN SODIUM INJECTION [Suspect]
     Route: 010
     Dates: start: 20071031
  10. HEPARIN SODIUM INJECTION [Suspect]
     Route: 010
     Dates: start: 20071212
  11. HEPARIN SODIUM INJECTION [Suspect]
     Route: 010
     Dates: start: 20071212
  12. HEPARIN SODIUM INJECTION [Suspect]
     Route: 010
     Dates: start: 20080120
  13. HEPARIN SODIUM INJECTION [Suspect]
     Route: 010
     Dates: start: 20080125
  14. HEPARIN SODIUM INJECTION [Suspect]
     Route: 010
     Dates: start: 20080208
  15. HEPARIN SODIUM INJECTION [Suspect]
     Route: 010
     Dates: start: 20080220
  16. HEPARIN SODIUM INJECTION [Suspect]
     Route: 010
     Dates: start: 20080305
  17. HEPARIN SODIUM INJECTION [Suspect]
     Route: 010
     Dates: start: 20080305
  18. HEPARIN SODIUM INJECTION [Suspect]
     Route: 010
     Dates: start: 20080319
  19. HEPARIN SODIUM INJECTION [Suspect]
     Route: 010
     Dates: start: 20080319
  20. FUROSEMIDE [Concomitant]
     Indication: DRUG USE FOR UNKNOWN INDICATION
     Route: 048
  21. ELAVIL [Concomitant]
     Indication: DRUG USE FOR UNKNOWN INDICATION
     Route: 048
  22. PHOSLO [Concomitant]
     Indication: DRUG USE FOR UNKNOWN INDICATION
     Route: 048
  23. RENAGEL [Concomitant]
     Indication: DRUG USE FOR UNKNOWN INDICATION
     Route: 048
  24. DIATX [Concomitant]
     Indication: DRUG USE FOR UNKNOWN INDICATION
     Route: 048
  25. COZAAR [Concomitant]
     Indication: DRUG USE FOR UNKNOWN INDICATION
     Route: 048
  26. NPH INSULIN [Concomitant]
     Indication: DRUG USE FOR UNKNOWN INDICATION
     Route: 065
  27. NPH INSULIN [Concomitant]
     Route: 048
  28. INSULIN [Concomitant]
     Indication: DRUG USE FOR UNKNOWN INDICATION
     Route: 065
  29. ATORVASTATIN CALCIUM [Concomitant]
     Indication: DRUG USE FOR UNKNOWN INDICATION
     Route: 048
  30. SENSIPAR [Concomitant]
     Indication: DRUG USE FOR UNKNOWN INDICATION
     Route: 048
  31. DIPHENHYDRAMINE [Concomitant]
     Indication: DRUG USE FOR UNKNOWN INDICATION
     Route: 048
  32. HYDROCODONE [Concomitant]
     Indication: DRUG USE FOR UNKNOWN INDICATION
     Route: 048
  33. ANTIBIOTICS [Concomitant]
     Indication: DRUG USE FOR UNKNOWN INDICATION
     Route: 065
  34. IRON [Concomitant]
     Indication: DRUG USE FOR UNKNOWN INDICATION
     Route: 065
  35. EPOGEN [Concomitant]
     Indication: DRUG USE FOR UNKNOWN INDICATION
     Route: 065
  36. INSULIN [Concomitant]
     Route: 065

REACTIONS (11)
  - ABDOMINAL PAIN [None]
  - ATRIAL FIBRILLATION [None]
  - BACK PAIN [None]
  - BLOOD PRESSURE DECREASED [None]
  - CARDIAC ARREST [None]
  - CELLULITIS [None]
  - DYSPNOEA [None]
  - FATIGUE [None]
  - MYOCARDIAL INFARCTION [None]
  - SPEECH DISORDER [None]
  - URINARY TRACT INFECTION [None]
